FAERS Safety Report 6335325-6 (Version None)
Quarter: 2009Q3

REPORT INFORMATION
  Report Type: 
  Country: None (occurrence: None)
  Receive Date: 20090831
  Receipt Date: 20090820
  Transmission Date: 20100115
  Serious: Yes (Hospitalization)
  Sender: FDA-Public Use
  Company Number: FR-ASTRAZENECA-2009SE09270

PATIENT
  Age: 17151 Day
  Sex: Male

DRUGS (6)
  1. MOPRAL [Suspect]
     Route: 048
     Dates: start: 20080701
  2. PERINDROPRIL [Suspect]
     Route: 065
     Dates: start: 20081201, end: 20090213
  3. CARDENSIEL [Suspect]
     Route: 065
     Dates: start: 20080701
  4. KARDEGIC [Suspect]
     Route: 065
     Dates: start: 20080701
  5. TAHOR [Suspect]
     Route: 065
     Dates: start: 20080701
  6. CORTANCYL [Suspect]
     Route: 065
     Dates: start: 20080701

REACTIONS (2)
  - FACE OEDEMA [None]
  - RASH [None]
